FAERS Safety Report 12182332 (Version 1)
Quarter: 2016Q1

REPORT INFORMATION
  Report Type: Spontaneous
  Country: US (occurrence: US)
  Receive Date: 20160316
  Receipt Date: 20160316
  Transmission Date: 20160526
  Serious: No
  Sender: FDA-Public Use
  Company Number: US-HOSPIRA-3108765

PATIENT
  Sex: Male

DRUGS (3)
  1. SODIUM CHLORIDE. [Suspect]
     Active Substance: SODIUM CHLORIDE
     Indication: OSTEOMYELITIS
     Route: 042
     Dates: start: 20151103, end: 20151211
  2. VANCOMYCIN HYDROCHLORIDE. [Suspect]
     Active Substance: VANCOMYCIN HYDROCHLORIDE
     Indication: OSTEOMYELITIS
     Route: 042
     Dates: start: 20151103, end: 20151211
  3. CEFTIN [Suspect]
     Active Substance: CEFUROXIME AXETIL
     Indication: OSTEOMYELITIS
     Dates: start: 20151103, end: 20151211

REACTIONS (1)
  - Red man syndrome [Recovered/Resolved]

NARRATIVE: CASE EVENT DATE: 20151119
